FAERS Safety Report 5741217-3 (Version None)
Quarter: 2008Q2

REPORT INFORMATION
  Report Type: 
  Country: None (occurrence: None)
  Receive Date: 20080516
  Receipt Date: 20080508
  Transmission Date: 20081010
  Serious: Yes (Other)
  Sender: FDA-Public Use
  Company Number: BR-PFIZER INC-2008041106

PATIENT
  Sex: Male
  Weight: 74 kg

DRUGS (2)
  1. CHANTIX [Suspect]
     Indication: TOBACCO ABUSE
     Route: 048
     Dates: start: 20070401, end: 20080401
  2. CYMBALTA [Concomitant]

REACTIONS (3)
  - HAEMORRHOID OPERATION [None]
  - NICOTINE DEPENDENCE [None]
  - SMOKER [None]
